FAERS Safety Report 8145026-X (Version None)
Quarter: 2012Q1

REPORT INFORMATION
  Report Type: 
  Country: None (occurrence: None)
  Receive Date: 20120217
  Receipt Date: 20120208
  Transmission Date: 20120608
  Serious: Yes (Hospitalization)
  Sender: FDA-Public Use
  Company Number: PHHY2011DE85802

PATIENT
  Sex: Female
  Weight: 97 kg

DRUGS (5)
  1. LEVOPAR [Concomitant]
  2. ASPIRIN [Concomitant]
  3. MOXONIDINE [Concomitant]
  4. TASIGNA [Suspect]
     Indication: CHRONIC MYELOID LEUKAEMIA
     Dosage: 800 MG, QD
     Route: 048
     Dates: start: 20100104
  5. AMITRIPTYLINE HCL [Concomitant]

REACTIONS (8)
  - CEREBRAL INFARCTION [None]
  - CEREBROVASCULAR ACCIDENT [None]
  - ABDOMINAL PAIN LOWER [None]
  - CHILLS [None]
  - DIARRHOEA [None]
  - PYREXIA [None]
  - TRANSIENT ISCHAEMIC ATTACK [None]
  - ASTHENIA [None]
